FAERS Safety Report 17606568 (Version 1)
Quarter: 2020Q1

REPORT INFORMATION
  Report Type: Spontaneous
  Country: US (occurrence: US)
  Receive Date: 20200331
  Receipt Date: 20200331
  Transmission Date: 20200409
  Serious: No
  Sender: FDA-Public Use
  Company Number: US-CELGENEUS-USA-20200308018

PATIENT
  Sex: Male

DRUGS (1)
  1. REVLIMID [Suspect]
     Active Substance: LENALIDOMIDE
     Indication: PLASMA CELL MYELOMA
     Dosage: 2.5 MILLIGRAM
     Route: 048
     Dates: start: 202001

REACTIONS (6)
  - Fatigue [Unknown]
  - Lip discolouration [Unknown]
  - Depressed mood [Unknown]
  - Decreased appetite [Unknown]
  - Laziness [Unknown]
  - Nausea [Unknown]

NARRATIVE: CASE EVENT DATE: 2020
